FAERS Safety Report 10032602 (Version 2)
Quarter: 2014Q2

REPORT INFORMATION
  Report Type: Spontaneous
  Country: DE (occurrence: DE)
  Receive Date: 20140324
  Receipt Date: 20140526
  Transmission Date: 20141212
  Serious: Yes (Hospitalization, Disabling, Other)
  Sender: FDA-Public Use
  Company Number: DE-UCBSA-114725

PATIENT
  Age: 59 Year
  Sex: Female
  Weight: 70 kg

DRUGS (7)
  1. VIMPAT 200 [Suspect]
     Dosage: 2X1, 200MG
     Route: 048
     Dates: start: 20140110
  2. KEPPRA 1000 [Suspect]
     Indication: EPILEPSY
     Dosage: 2X1,1000MG
     Route: 048
     Dates: start: 20140106, end: 20140126
  3. PRADAXA 150 [Suspect]
     Indication: CEREBRAL INFARCTION
     Dosage: 2X1
     Dates: start: 20140124
  4. ORFIRIL LONG 600 [Suspect]
     Dosage: 2X1
     Dates: start: 20140116
  5. SIMVASTATIN [Concomitant]
     Indication: CEREBROVASCULAR ACCIDENT
     Route: 048
     Dates: start: 201301
  6. BELOC ZOK MITE [Concomitant]
  7. DELIX [Concomitant]

REACTIONS (18)
  - Renal infarct [Not Recovered/Not Resolved]
  - Epilepsy [Unknown]
  - Proteinuria [None]
  - Haematuria [None]
  - Renal failure [None]
  - Renal abscess [None]
  - Glomerulonephritis [None]
  - Renal artery stenosis [None]
  - Nausea [None]
  - Anticonvulsant drug level above therapeutic [None]
  - Bradycardia [None]
  - Atrial fibrillation [None]
  - Atrial fibrillation [None]
  - Bundle branch block right [None]
  - Electrocardiogram repolarisation abnormality [None]
  - Hepatic steatosis [None]
  - Renal artery arteriosclerosis [None]
  - Cerebral haemosiderin deposition [None]
